FAERS Safety Report 7524614-5 (Version None)
Quarter: 2011Q2

REPORT INFORMATION
  Report Type: 
  Country: None (occurrence: None)
  Receive Date: 20110525
  Receipt Date: 20110518
  Transmission Date: 20111010
  Serious: Yes (Other)
  Sender: FDA-Public Use
  Company Number: 2011PL000071

PATIENT
  Age: 40 Year
  Sex: Female

DRUGS (1)
  1. AZATHIOPRINE [Suspect]
     Indication: CROHN'S DISEASE
     Dosage: 100 MG, QD

REACTIONS (10)
  - THROMBOCYTOPENIA [None]
  - NODULAR REGENERATIVE HYPERPLASIA [None]
  - PORTAL HYPERTENSIVE GASTROPATHY [None]
  - ABDOMINAL PAIN UPPER [None]
  - ENDOCARDIAL VARICES [None]
  - CONDITION AGGRAVATED [None]
  - SPLENOMEGALY [None]
  - CROHN'S DISEASE [None]
  - DIARRHOEA [None]
  - BLOOD PRESSURE DIASTOLIC INCREASED [None]
